FAERS Safety Report 14162601 (Version 1)
Quarter: 2017Q4

REPORT INFORMATION
  Report Type: Spontaneous
  Country: US (occurrence: US)
  Receive Date: 20171106
  Receipt Date: 20171106
  Transmission Date: 20180321
  Serious: No
  Sender: FDA-Public Use
  Company Number: US-BAYER-2017-212474

PATIENT
  Age: 75 Year
  Sex: Female

DRUGS (10)
  1. TUMS [Concomitant]
     Active Substance: CALCIUM CARBONATE
     Dosage: UNK
  2. MAGNESIUM CITRATE. [Concomitant]
     Active Substance: MAGNESIUM CITRATE
     Dosage: UNK
  3. FAMOTIDINE. [Concomitant]
     Active Substance: FAMOTIDINE
     Dosage: UNK
  4. ROLAIDS [CALCIUM CARBONATE,MAGNESIUM HYDROXIDE] [Concomitant]
     Dosage: UNK
  5. DULCOLAX PICOSULFAT [Concomitant]
     Active Substance: SODIUM PICOSULFATE
  6. EX-LAX [SENNA ALEXANDRINA] [Concomitant]
     Dosage: UNK
  7. MILK OF MAGNESIA ORIGINAL [Suspect]
     Active Substance: MAGNESIUM HYDROXIDE
     Indication: GASTROINTESTINAL DISORDER
     Dosage: MOUTHFUL , PRN
     Route: 048
     Dates: start: 2017
  8. MIRALAX [Suspect]
     Active Substance: POLYETHYLENE GLYCOL 3350
     Indication: GASTROINTESTINAL DISORDER
     Dosage: 1 DF, QD
     Route: 048
     Dates: start: 201704, end: 20170501
  9. METOPROLOL. [Concomitant]
     Active Substance: METOPROLOL
     Dosage: UNK
  10. FLECTADOL [Concomitant]
     Dosage: UNK

REACTIONS (7)
  - Product use issue [Unknown]
  - Drug ineffective [Unknown]
  - Constipation [Unknown]
  - Bone contusion [Unknown]
  - Palpitations [Unknown]
  - Abdominal distension [Unknown]
  - Therapeutic response unexpected [Unknown]
